FAERS Safety Report 9423644 (Version 10)
Quarter: 2014Q2

REPORT INFORMATION
  Report Type: Report from Study
  Country: FR (occurrence: FR)
  Receive Date: 20130726
  Receipt Date: 20140521
  Transmission Date: 20141212
  Serious: Yes (Life-Threatening, Hospitalization)
  Sender: FDA-Public Use
  Company Number: FR-ROCHE-1253558

PATIENT
  Age: 80 Year
  Sex: Male
  Weight: 72 kg

DRUGS (14)
  1. VEMURAFENIB [Suspect]
     Indication: MALIGNANT MELANOMA
     Dosage: 4 DF
     Route: 048
     Dates: start: 20130528, end: 20130710
  2. VEMURAFENIB [Suspect]
     Route: 048
     Dates: start: 20130711, end: 20130722
  3. PIASCLEDINE (FRANCE) [Concomitant]
     Indication: OSTEOARTHRITIS
     Route: 048
  4. PIASCLEDINE (FRANCE) [Concomitant]
     Route: 065
     Dates: start: 2013
  5. HYPROMELLOSE [Concomitant]
     Route: 065
     Dates: start: 2013
  6. DOMPERIDONE [Concomitant]
     Route: 065
     Dates: start: 20130710
  7. METOCLOPRAMIDE HYDROCHLORIDE [Concomitant]
     Route: 065
     Dates: start: 20130710
  8. CETIRIZINE HYDROCHLORIDE [Concomitant]
     Route: 065
     Dates: start: 20120605, end: 20130625
  9. BETAMETHASONE DIPROPIONATE [Concomitant]
     Route: 065
     Dates: start: 20130611
  10. CETIRIZINE HYDROCHLORIDE [Concomitant]
  11. BETAMETHASONE DIPROPIONATE [Concomitant]
  12. BION 3 (FRANCE) [Concomitant]
  13. CHONDROSULF [Concomitant]
     Indication: OSTEOARTHRITIS
     Route: 048
  14. PRIMPERAN [Concomitant]
     Indication: NAUSEA
     Route: 048

REACTIONS (4)
  - Hepatitis acute [Not Recovered/Not Resolved]
  - Hepatic enzyme increased [Recovered/Resolved]
  - Transitional cell carcinoma [Recovered/Resolved]
  - Urinary tract neoplasm [Recovered/Resolved]
